FAERS Safety Report 14603867 (Version 1)
Quarter: 2018Q1

REPORT INFORMATION
  Report Type: Spontaneous
  Country: US (occurrence: US)
  Receive Date: 20180305
  Receipt Date: 20180305
  Transmission Date: 20180509
  Serious: No
  Sender: FDA-Public Use
  Company Number: None

PATIENT
  Age: 41 Year
  Sex: Male
  Weight: 122.4 kg

DRUGS (1)
  1. VIVITROL [Suspect]
     Active Substance: NALTREXONE
     Indication: DRUG USE DISORDER
     Dosage: ?          OTHER FREQUENCY:EVERY 4 WEEKS;?
     Route: 030

REACTIONS (3)
  - Injection site pain [None]
  - Acne [None]
  - Infection [None]

NARRATIVE: CASE EVENT DATE: 20180218
